FAERS Safety Report 13535729 (Version 4)
Quarter: 2018Q1

REPORT INFORMATION
  Report Type: Report from Study
  Country: None (occurrence: US)
  Receive Date: 20170511
  Receipt Date: 20180131
  Transmission Date: 20180508
  Serious: Yes (Other)
  Sender: FDA-Public Use
  Company Number: US-ABBVIE-17K-163-1885259-00

PATIENT
  Age: 57 Year
  Sex: Female

DRUGS (10)
  1. HUMIRA [Suspect]
     Active Substance: ADALIMUMAB
     Route: 058
     Dates: start: 201704, end: 201709
  2. METHOTREXATE. [Concomitant]
     Active Substance: METHOTREXATE
     Indication: PRODUCT USED FOR UNKNOWN INDICATION
     Dates: start: 201708
  3. HUMIRA [Suspect]
     Active Substance: ADALIMUMAB
     Indication: PSORIATIC ARTHROPATHY
     Route: 058
     Dates: start: 2009, end: 2012
  4. HUMIRA [Suspect]
     Active Substance: ADALIMUMAB
     Route: 058
     Dates: start: 20170305, end: 20170305
  5. HUMIRA [Suspect]
     Active Substance: ADALIMUMAB
     Route: 058
     Dates: start: 201711, end: 201801
  6. HUMIRA [Suspect]
     Active Substance: ADALIMUMAB
     Route: 058
     Dates: start: 201801
  7. HUMIRA [Suspect]
     Active Substance: ADALIMUMAB
     Route: 058
     Dates: start: 20170226, end: 20170226
  8. HUMIRA [Suspect]
     Active Substance: ADALIMUMAB
     Route: 058
     Dates: start: 20170318, end: 201704
  9. CALCITRIOL. [Concomitant]
     Active Substance: CALCITRIOL
     Indication: THYROID DISORDER
  10. CALCITRIOL. [Concomitant]
     Active Substance: CALCITRIOL
     Indication: BLOOD CALCIUM DECREASED

REACTIONS (42)
  - Rash papular [Unknown]
  - Paraesthesia [Unknown]
  - Vulvovaginal mycotic infection [Unknown]
  - Loss of personal independence in daily activities [Unknown]
  - Chills [Unknown]
  - Musculoskeletal stiffness [Unknown]
  - Depression [Unknown]
  - Nausea [Unknown]
  - Fat tissue increased [Unknown]
  - Joint stiffness [Recovering/Resolving]
  - Joint swelling [Recovering/Resolving]
  - Gait disturbance [Unknown]
  - Injection site bruising [Unknown]
  - Hypoaesthesia [Unknown]
  - Vision blurred [Unknown]
  - Foot deformity [Unknown]
  - Inflammation [Recovering/Resolving]
  - Anxiety [Unknown]
  - Swelling face [Unknown]
  - Squamous cell carcinoma of skin [Unknown]
  - Rash [Unknown]
  - Hand-foot-and-mouth disease [Unknown]
  - Abdominal distension [Unknown]
  - Pain in extremity [Not Recovered/Not Resolved]
  - Headache [Not Recovered/Not Resolved]
  - Pharyngitis streptococcal [Recovered/Resolved]
  - Arthralgia [Recovering/Resolving]
  - Fatigue [Not Recovered/Not Resolved]
  - Postoperative wound complication [Unknown]
  - Basal cell carcinoma [Not Recovered/Not Resolved]
  - Nervousness [Unknown]
  - Rash pruritic [Unknown]
  - Postoperative wound infection [Unknown]
  - Drug resistance [Unknown]
  - Nasal septum deviation [Unknown]
  - Skin papilloma [Unknown]
  - Migraine [Unknown]
  - Contusion [Unknown]
  - Peripheral swelling [Recovering/Resolving]
  - Swelling [Unknown]
  - Dry mouth [Unknown]
  - Skin plaque [Unknown]

NARRATIVE: CASE EVENT DATE: 2017
